FAERS Safety Report 20503652 (Version 1)
Quarter: 2022Q1

REPORT INFORMATION
  Report Type: Report from Study
  Country: FR (occurrence: FR)
  Receive Date: 20220222
  Receipt Date: 20220222
  Transmission Date: 20220423
  Serious: Yes (Hospitalization, Other)
  Sender: FDA-Public Use
  Company Number: FR-TAKEDA-2022TUS011902

PATIENT
  Age: 8 Year
  Sex: Male

DRUGS (8)
  1. TEDUGLUTIDE [Suspect]
     Active Substance: TEDUGLUTIDE
     Indication: Short-bowel syndrome
     Dosage: 1.26 MILLIGRAM, QD
     Route: 065
     Dates: start: 20220120, end: 20220214
  2. TEDUGLUTIDE [Suspect]
     Active Substance: TEDUGLUTIDE
     Indication: Short-bowel syndrome
     Dosage: 1.26 MILLIGRAM, QD
     Route: 065
     Dates: start: 20220120, end: 20220214
  3. TEDUGLUTIDE [Suspect]
     Active Substance: TEDUGLUTIDE
     Indication: Short-bowel syndrome
     Dosage: 1.26 MILLIGRAM, QD
     Route: 065
     Dates: start: 20220120, end: 20220214
  4. TEDUGLUTIDE [Suspect]
     Active Substance: TEDUGLUTIDE
     Indication: Short-bowel syndrome
     Dosage: 1.26 MILLIGRAM, QD
     Route: 065
     Dates: start: 20220120, end: 20220214
  5. ESOMEPRAZOLE [Concomitant]
     Active Substance: ESOMEPRAZOLE
     Indication: Abdominal pain
     Dosage: 20 MILLIGRAM, QD
     Route: 048
     Dates: start: 20210218, end: 202103
  6. POLARAMINE [Concomitant]
     Active Substance: DEXCHLORPHENIRAMINE MALEATE
     Indication: Pruritus
     Dosage: UNK UNK, BID
     Route: 042
     Dates: start: 20201227, end: 202101
  7. FAMOTIDINE [Concomitant]
     Active Substance: FAMOTIDINE
     Indication: Abdominal pain
     Dosage: 40 MILLIGRAM, QD
     Route: 042
     Dates: start: 20210105
  8. TARGOCID [Concomitant]
     Active Substance: TEICOPLANIN
     Indication: Staphylococcal infection
     Dosage: 10 MILLIGRAM/KILOGRAM, QD
     Route: 042
     Dates: start: 20201227, end: 20210101

REACTIONS (2)
  - Staphylococcal infection [Not Recovered/Not Resolved]
  - Vascular device infection [Not Recovered/Not Resolved]

NARRATIVE: CASE EVENT DATE: 20220214
